FAERS Safety Report 19798991 (Version 1)
Quarter: 2021Q3

REPORT INFORMATION
  Report Type: Spontaneous
  Country: US (occurrence: US)
  Receive Date: 20210907
  Receipt Date: 20210907
  Transmission Date: 20211014
  Serious: Yes (Disabling)
  Sender: FDA-Public Use
  Company Number: None

PATIENT
  Age: 61 Year
  Sex: Female
  Weight: 75.6 kg

DRUGS (7)
  1. HRT [Concomitant]
     Active Substance: UNSPECIFIED INGREDIENT
  2. VIT D [Concomitant]
     Active Substance: VITAMIN D NOS
  3. COLESEVELAM HYDROCHLORIDE. [Suspect]
     Active Substance: COLESEVELAM HYDROCHLORIDE
     Indication: BLOOD CHOLESTEROL INCREASED
     Route: 048
     Dates: start: 20210809, end: 20210905
  4. MULTIVITAMIN [Concomitant]
     Active Substance: VITAMINS
  5. COLESEVELAM [Concomitant]
     Active Substance: COLESEVELAM
  6. COQ [Concomitant]
  7. TUMERIC [Concomitant]
     Active Substance: HERBALS\TURMERIC

REACTIONS (3)
  - Product substitution issue [None]
  - Arthralgia [None]
  - Pain in extremity [None]

NARRATIVE: CASE EVENT DATE: 20210816
